FAERS Safety Report 8029691-3 (Version None)
Quarter: 2012Q1

REPORT INFORMATION
  Report Type: 
  Country: None (occurrence: None)
  Receive Date: 20120109
  Receipt Date: 20120103
  Transmission Date: 20120608
  Serious: Yes (Other)
  Sender: FDA-Public Use
  Company Number: DK-PFIZER INC-2012002862

PATIENT
  Age: 50 Year
  Sex: Female

DRUGS (12)
  1. TRUXAL [Concomitant]
  2. ZIPRASIDONE HYDROCHLORIDE [Suspect]
     Dosage: 40 MG, 2X/DAY
  3. SUMATRIPTAN [Concomitant]
     Dosage: 50 MG, AS NEEDED
  4. IBRUPROFEN [Concomitant]
  5. ZIPRASIDONE HYDROCHLORIDE [Suspect]
     Dosage: 80 MG, 2X/DAY
  6. ESTROGENS [Concomitant]
  7. OXYCODONE HCL [Concomitant]
  8. LOTEX [Concomitant]
  9. BRICANYL COMP. [Concomitant]
     Route: 055
  10. PINEX [Concomitant]
  11. ZOPICLONE [Concomitant]
  12. CITALOPRAM [Concomitant]

REACTIONS (1)
  - HYPERTHERMIA [None]
